FAERS Safety Report 18276200 (Version 1)
Quarter: 2020Q3

REPORT INFORMATION
  Report Type: Spontaneous
  Country: US (occurrence: US)
  Receive Date: 20200917
  Receipt Date: 20200917
  Transmission Date: 20201103
  Serious: No
  Sender: FDA-Public Use
  Company Number: US-BION-008734

PATIENT
  Sex: Female
  Weight: 60.33 kg

DRUGS (1)
  1. ZYRTEC [Suspect]
     Active Substance: CETIRIZINE HYDROCHLORIDE
     Indication: SEASONAL ALLERGY
     Dosage: ONCE A DAY, EVENING
     Route: 048
     Dates: start: 20200502, end: 20200502

REACTIONS (1)
  - Adverse event [Recovered/Resolved]

NARRATIVE: CASE EVENT DATE: 20200510
